FAERS Safety Report 5262117-1 (Version None)
Quarter: 2007Q1

REPORT INFORMATION
  Report Type: 
  Country: None (occurrence: None)
  Receive Date: 20070311
  Receipt Date: 20070228
  Transmission Date: 20070707
  Serious: Yes (Death, Hospitalization)
  Sender: FDA-Public Use
  Company Number: 2006UW09853

PATIENT
  Sex: Female
  Weight: 100 kg

DRUGS (3)
  1. SEROQUEL [Suspect]
     Indication: AGGRESSION
     Dosage: 50MG TO 100MG
     Route: 048
     Dates: start: 20040401, end: 20040901
  2. CLONIDINE [Concomitant]
     Dates: start: 19940101, end: 20040101
  3. ZOLOFT [Concomitant]
     Dates: start: 19940101, end: 20040101

REACTIONS (5)
  - DIABETES MELLITUS [None]
  - DIABETIC KETOACIDOSIS [None]
  - PANCREATITIS [None]
  - SHOCK [None]
  - TARDIVE DYSKINESIA [None]
